FAERS Safety Report 7270934-1 (Version None)
Quarter: 2011Q1

REPORT INFORMATION
  Report Type: 
  Country: None (occurrence: None)
  Receive Date: 20110202
  Receipt Date: 20110124
  Transmission Date: 20110831
  Serious: Yes (Hospitalization)
  Sender: FDA-Public Use
  Company Number: FR-ASTRAZENECA-2011SE04199

PATIENT
  Age: 22393 Day
  Sex: Male

DRUGS (7)
  1. CRESTOR [Interacting]
     Route: 048
     Dates: start: 20101219, end: 20101219
  2. MODURETIC 5-50 [Concomitant]
  3. CRESTOR [Suspect]
     Route: 048
     Dates: start: 20110101
  4. SINTROM [Interacting]
     Route: 048
  5. BECOTIDE [Concomitant]
  6. CORTANCYL [Interacting]
     Indication: NEPHROTIC SYNDROME
     Route: 048
  7. EZETROL [Concomitant]

REACTIONS (10)
  - DUODENAL ULCER [None]
  - BLOOD PRESSURE DECREASED [None]
  - ANAEMIA [None]
  - BLOOD GLUCOSE INCREASED [None]
  - GASTRITIS [None]
  - DRUG INTERACTION [None]
  - INTERNATIONAL NORMALISED RATIO INCREASED [None]
  - POLYURIA [None]
  - POLYDIPSIA [None]
  - MELAENA [None]
